FAERS Safety Report 9422536 (Version 1)
Quarter: 2013Q3

REPORT INFORMATION
  Report Type: Spontaneous
  Country: BR (occurrence: BR)
  Receive Date: 20130726
  Receipt Date: 20130726
  Transmission Date: 20140515
  Serious: Yes (Other)
  Sender: FDA-Public Use
  Company Number: BR-BAYER-2013-087490

PATIENT
  Age: 56 Year
  Sex: Female
  Weight: 75 kg

DRUGS (5)
  1. INTERFERON BETA - 1B [Suspect]
     Indication: HEPATITIS C
     Dosage: 180 MG, OW
     Dates: start: 2011, end: 2012
  2. CARBAMAZEPINE [Suspect]
     Indication: EPILEPSY
     Dosage: 400 MG, QD
  3. RIBAVIRIN [Suspect]
     Indication: HEPATITIS C
     Dosage: 1 DF, QD
     Dates: start: 2011, end: 2012
  4. FILGRASTIM [Suspect]
     Indication: HEPATITIS C
     Dosage: 300 MG, UNK
     Dates: start: 2011, end: 2012
  5. FENISTIL [Suspect]
     Indication: PRODUCT USED FOR UNKNOWN INDICATION
     Dosage: 100 MG, HS

REACTIONS (3)
  - Hepatitis C virus test positive [None]
  - Platelet count decreased [None]
  - Anaemia [None]
